FAERS Safety Report 5410464-2 (Version None)
Quarter: 2007Q3

REPORT INFORMATION
  Report Type: 
  Country: None (occurrence: None)
  Receive Date: 20070810
  Receipt Date: 20070405
  Transmission Date: 20080115
  Serious: No
  Sender: FDA-Public Use
  Company Number: A0632622A

PATIENT
  Age: 31 Year
  Sex: Female

DRUGS (3)
  1. PAXIL [Suspect]
     Indication: PANIC DISORDER
     Dosage: 5MG PER DAY
     Route: 048
     Dates: start: 20061216
  2. XANAX [Concomitant]
  3. MULTIVITAMIN [Concomitant]

REACTIONS (9)
  - AGITATION [None]
  - ANXIETY [None]
  - DIZZINESS [None]
  - DRUG ADMINISTRATION ERROR [None]
  - DRUG INEFFECTIVE [None]
  - EMOTIONAL DISORDER [None]
  - FEELING ABNORMAL [None]
  - PAIN IN EXTREMITY [None]
  - PHARMACEUTICAL PRODUCT COMPLAINT [None]
